FAERS Safety Report 9440452 (Version 1)
Quarter: 2013Q3

REPORT INFORMATION
  Report Type: Spontaneous
  Country: JM (occurrence: JM)
  Receive Date: 20130805
  Receipt Date: 20130805
  Transmission Date: 20140515
  Serious: Yes (Death, Hospitalization, Other)
  Sender: FDA-Public Use
  Company Number: PHHY2013JM082314

PATIENT
  Age: 22 Year
  Sex: Female

DRUGS (6)
  1. CLINDAMYCIN [Suspect]
     Indication: TOOTH EXTRACTION
  2. CLINDAMYCIN [Suspect]
     Indication: TOOTH ABSCESS
  3. CHLORAMPHENICOL [Suspect]
     Indication: PYREXIA
  4. CHLORAMPHENICOL [Suspect]
     Indication: DIARRHOEA
  5. METRONIDAZOLE [Suspect]
     Indication: PYREXIA
     Route: 042
  6. METRONIDAZOLE [Suspect]
     Indication: DIARRHOEA

REACTIONS (17)
  - Death [Fatal]
  - Pseudomembranous colitis [Unknown]
  - Clostridium difficile infection [Unknown]
  - Pyrexia [Unknown]
  - Cardio-respiratory distress [Unknown]
  - Hypotension [Unknown]
  - Tachycardia [Unknown]
  - Megacolon [Unknown]
  - Intestinal perforation [Unknown]
  - Klebsiella infection [Unknown]
  - Pulmonary oedema [Unknown]
  - Leukopenia [Unknown]
  - Thrombocytopenia [Unknown]
  - Diarrhoea [Unknown]
  - Klebsiella sepsis [Unknown]
  - Acute respiratory distress syndrome [Unknown]
  - Drug ineffective [Unknown]
